FAERS Safety Report 12650743 (Version 1)
Quarter: 2016Q3

REPORT INFORMATION
  Report Type: Spontaneous
  Country: US (occurrence: US)
  Receive Date: 20160815
  Receipt Date: 20160815
  Transmission Date: 20161109
  Serious: No
  Sender: FDA-Public Use
  Company Number: US-JAZZ-2016-US-004709

PATIENT
  Age: 47 Year
  Sex: Male

DRUGS (11)
  1. ELIDEL [Concomitant]
     Active Substance: PIMECROLIMUS
  2. ALPRAZOLAM ER [Concomitant]
     Active Substance: ALPRAZOLAM
  3. XYREM [Suspect]
     Active Substance: SODIUM OXYBATE
     Indication: CATAPLEXY
  4. TRUVADA [Concomitant]
     Active Substance: EMTRICITABINE\TENOFOVIR DISOPROXIL FUMARATE
  5. NORCO [Concomitant]
     Active Substance: ACETAMINOPHEN\HYDROCODONE BITARTRATE
  6. CIALIS [Concomitant]
     Active Substance: TADALAFIL
  7. DESLORATADINE. [Concomitant]
     Active Substance: DESLORATADINE
  8. CRESTOR [Concomitant]
     Active Substance: ROSUVASTATIN CALCIUM
  9. RESTASIS [Concomitant]
     Active Substance: CYCLOSPORINE
  10. REMICADE [Concomitant]
     Active Substance: INFLIXIMAB
  11. XYREM [Suspect]
     Active Substance: SODIUM OXYBATE
     Indication: NARCOLEPSY
     Dosage: 2.25 G, BID
     Route: 048
     Dates: start: 20160308

REACTIONS (2)
  - Polyuria [Unknown]
  - Increased appetite [Unknown]

NARRATIVE: CASE EVENT DATE: 20160308
